FAERS Safety Report 11696248 (Version 1)
Quarter: 2015Q4

REPORT INFORMATION
  Report Type: Spontaneous
  Country: US (occurrence: US)
  Receive Date: 20151104
  Receipt Date: 20151104
  Transmission Date: 20160304
  Serious: Yes (Other)
  Sender: FDA-Public Use
  Company Number: US-DRREDDYS-USA/USA/15/0053792

PATIENT
  Age: 52 Year
  Sex: Male

DRUGS (3)
  1. TACROLIMUS. [Suspect]
     Active Substance: TACROLIMUS
     Indication: IMMUNOSUPPRESSION
     Route: 065
  2. PREDNISONE. [Suspect]
     Active Substance: PREDNISONE
     Indication: IMMUNOSUPPRESSION
     Route: 065
  3. MYCOPHENOLATE MOFETIL. [Suspect]
     Active Substance: MYCOPHENOLATE MOFETIL
     Indication: IMMUNOSUPPRESSION
     Route: 065

REACTIONS (9)
  - Kidney fibrosis [None]
  - Large intestine perforation [Unknown]
  - Renal tubular atrophy [None]
  - Hypotension [Unknown]
  - Epstein-Barr virus test positive [None]
  - Complications of transplanted kidney [Recovered/Resolved]
  - Toxicity to various agents [None]
  - Graft haemorrhage [Unknown]
  - Gastrointestinal stoma complication [None]
